FAERS Safety Report 19692715 (Version 1)
Quarter: 2021Q3

REPORT INFORMATION
  Report Type: Spontaneous
  Country: BR (occurrence: BR)
  Receive Date: 20210812
  Receipt Date: 20210812
  Transmission Date: 20211014
  Serious: Yes (Hospitalization)
  Sender: FDA-Public Use
  Company Number: BR-NOVOPROD-813966

PATIENT
  Age: 60 Year
  Sex: Female
  Weight: 86.9 kg

DRUGS (6)
  1. IRBESARTAN HCTZ [Concomitant]
     Active Substance: HYDROCHLOROTHIAZIDE\IRBESARTAN
     Dosage: 300 + 12.5 MG/DAY
     Route: 065
  2. INSULATARD HM [Suspect]
     Active Substance: INSULIN HUMAN
     Indication: PRODUCT USED FOR UNKNOWN INDICATION
     Dosage: 24+30 (UNITS NOT REPORTED)
     Route: 065
  3. METFORMIN [Concomitant]
     Active Substance: METFORMIN HYDROCHLORIDE
     Dosage: 850 MG, TID
     Route: 065
  4. SIMVASTATIN. [Concomitant]
     Active Substance: SIMVASTATIN
     Dosage: 20 MG, QD
     Route: 065
  5. ASA [Concomitant]
     Active Substance: ASPIRIN
     Dosage: 100 MG, QD
     Route: 065
  6. LITOCIT [Concomitant]
     Dosage: UNK
     Route: 065

REACTIONS (1)
  - Glaucoma [Unknown]

NARRATIVE: CASE EVENT DATE: 201208
